FAERS Safety Report 12501854 (Version 1)
Quarter: 2016Q2

REPORT INFORMATION
  Report Type: Spontaneous
  Country: US (occurrence: US)
  Receive Date: 20160627
  Receipt Date: 20160627
  Transmission Date: 20160815
  Serious: No
  Sender: FDA-Public Use
  Company Number: US-SA-2016SA042544

PATIENT
  Sex: Male

DRUGS (2)
  1. HECTOROL [Suspect]
     Active Substance: DOXERCALCIFEROL
     Route: 065
     Dates: end: 2016
  2. SENSIPAR [Suspect]
     Active Substance: CINACALCET HYDROCHLORIDE
     Route: 065
     Dates: end: 2016

REACTIONS (3)
  - Rash [Unknown]
  - Urticaria [Unknown]
  - Skin reaction [Unknown]

NARRATIVE: CASE EVENT DATE: 201601
